FAERS Safety Report 12898140 (Version 1)
Quarter: 2016Q4

REPORT INFORMATION
  Report Type: Spontaneous
  Country: US (occurrence: US)
  Receive Date: 20161028
  Receipt Date: 20161028
  Transmission Date: 20170207
  Serious: No
  Sender: FDA-Public Use
  Company Number: None

PATIENT
  Sex: Female

DRUGS (1)
  1. IMATINIB 400MG NOVARTIS [Suspect]
     Active Substance: IMATINIB
     Indication: GASTROINTESTINAL STROMAL TUMOUR
     Route: 048
     Dates: start: 20160828

REACTIONS (6)
  - Mood swings [None]
  - Oedema [None]
  - Jaundice [None]
  - Abdominal pain [None]
  - Fatigue [None]
  - Oedema peripheral [None]
